FAERS Safety Report 9978736 (Version 1)
Quarter: 2014Q1

REPORT INFORMATION
  Report Type: Report from Study
  Country: US (occurrence: US)
  Receive Date: 20140306
  Receipt Date: 20140306
  Transmission Date: 20141002
  Serious: No
  Sender: FDA-Public Use
  Company Number: US-ABBVIE-13P-163-1170153-00

PATIENT
  Age: 41 Year
  Sex: Male
  Weight: 111.23 kg

DRUGS (9)
  1. HUMIRA [Suspect]
     Indication: PSORIASIS
     Dates: start: 20131010
  2. TRIBENZOR [Concomitant]
     Indication: HYPERTENSION
  3. COREG [Concomitant]
     Indication: HYPERTENSION
  4. METFORMIN [Concomitant]
     Indication: DIABETES MELLITUS
  5. FENOFIBRATE [Concomitant]
     Indication: BLOOD CHOLESTEROL INCREASED
  6. LIPITOR [Concomitant]
     Indication: BLOOD CHOLESTEROL INCREASED
  7. LEVOTHYROXINE [Concomitant]
     Indication: HORMONE REPLACEMENT THERAPY
  8. LANTUS [Concomitant]
     Indication: DIABETES MELLITUS
  9. APRIDA [Concomitant]
     Indication: DIABETES MELLITUS

REACTIONS (1)
  - Nasopharyngitis [Recovered/Resolved]
